FAERS Safety Report 23924380 (Version 1)
Quarter: 2024Q2

REPORT INFORMATION
  Report Type: Spontaneous
  Country: ES (occurrence: ES)
  Receive Date: 20240531
  Receipt Date: 20240531
  Transmission Date: 20240715
  Serious: Yes (Hospitalization, Other)
  Sender: FDA-Public Use
  Company Number: ES-DEAQVIDAP-20240025

PATIENT
  Age: 71 Year
  Sex: Male
  Weight: 93 kg

DRUGS (2)
  1. DOCETAXEL [Suspect]
     Active Substance: DOCETAXEL\DOCETAXEL ANHYDROUS
     Indication: Hormone-refractory prostate cancer
     Dosage: Q3W
     Route: 042
     Dates: start: 20240315, end: 20240315
  2. PREDNISONE [Suspect]
     Active Substance: PREDNISONE
     Indication: Hormone-refractory prostate cancer
     Dosage: BID
     Route: 048
     Dates: start: 20240315, end: 20240315

REACTIONS (19)
  - Neutrophil count decreased [Recovering/Resolving]
  - Lymphocyte count decreased [Unknown]
  - White blood cell count decreased [Unknown]
  - PO2 decreased [Unknown]
  - Protein urine present [Unknown]
  - Urobilinogen urine increased [Unknown]
  - Urine bilirubin increased [Unknown]
  - Oxygen saturation decreased [Unknown]
  - Haematocrit decreased [Unknown]
  - Haemoglobin decreased [Unknown]
  - Eosinophil count decreased [Unknown]
  - Atelectasis [Unknown]
  - C-reactive protein increased [Unknown]
  - Nitrite urine present [Unknown]
  - Procalcitonin increased [Unknown]
  - Protein urine present [Unknown]
  - Red blood cell count decreased [Unknown]
  - Glucose urine present [Unknown]
  - Prothrombin time prolonged [Unknown]

NARRATIVE: CASE EVENT DATE: 20240322
